FAERS Safety Report 16676237 (Version 2)
Quarter: 2019Q4

REPORT INFORMATION
  Report Type: Report from Study
  Country: US (occurrence: US)
  Receive Date: 20190807
  Receipt Date: 20191029
  Transmission Date: 20200122
  Serious: Yes (Hospitalization)
  Sender: FDA-Public Use
  Company Number: US-ROCHE-2368156

PATIENT
  Age: 50 Year
  Sex: Female
  Weight: 45.2 kg

DRUGS (6)
  1. MYCOPHENOLATE SODIUM [Concomitant]
     Active Substance: MYCOPHENOLATE SODIUM
     Route: 065
     Dates: start: 20181229
  2. MYCOPHENOLATE MOFETIL. [Suspect]
     Active Substance: MYCOPHENOLATE MOFETIL
     Indication: SYSTEMIC SCLEROSIS PULMONARY
     Dosage: 5 CAPSULES
     Route: 048
     Dates: start: 20180730, end: 20181220
  3. PIRFENIDONE. [Suspect]
     Active Substance: PIRFENIDONE
     Indication: SYSTEMIC SCLEROSIS PULMONARY
     Route: 048
     Dates: start: 20180730, end: 20181220
  4. AMLODIPINE [Concomitant]
     Active Substance: AMLODIPINE BESYLATE
     Route: 065
     Dates: start: 20150101
  5. OMEPRAZOLE. [Concomitant]
     Active Substance: OMEPRAZOLE
     Route: 065
     Dates: start: 20150101
  6. FEXOFENADINE [Concomitant]
     Active Substance: FEXOFENADINE HYDROCHLORIDE
     Route: 065
     Dates: start: 20181115

REACTIONS (3)
  - Ophthalmic herpes zoster [Recovering/Resolving]
  - Superinfection bacterial [Unknown]
  - Periorbital cellulitis [Unknown]

NARRATIVE: CASE EVENT DATE: 20190706
